FAERS Safety Report 8347067-6 (Version None)
Quarter: 2012Q2

REPORT INFORMATION
  Report Type: 
  Country: None (occurrence: None)
  Receive Date: 20120509
  Receipt Date: 20120424
  Transmission Date: 20120825
  Serious: Yes (Hospitalization, Other)
  Sender: FDA-Public Use
  Company Number: PHHY2012IL035596

PATIENT
  Age: 55 Year
  Sex: Male

DRUGS (4)
  1. CARDILOC [Concomitant]
     Indication: HYPERTENSION
  2. EXFORGE [Suspect]
     Indication: HYPERTENSION
     Dosage: 1 DF, UNK
     Route: 048
  3. RASILEZ [Suspect]
     Indication: HYPERTENSION
     Dosage: 300 MG, UNK
     Route: 048
  4. CARDEX [Concomitant]
     Indication: HYPERTENSION

REACTIONS (16)
  - VOMITING [None]
  - SLEEP DISORDER [None]
  - DYSPNOEA [None]
  - COUGH [None]
  - PROTEINURIA [None]
  - MALAISE [None]
  - WOUND INFECTION [None]
  - DRY SKIN [None]
  - HYPERTENSION [None]
  - CHILLS [None]
  - HERNIA [None]
  - PRURITUS [None]
  - OEDEMA PERIPHERAL [None]
  - DRUG INEFFECTIVE [None]
  - WOUND [None]
  - FEELING COLD [None]
